FAERS Safety Report 20310718 (Version 1)
Quarter: 2022Q1

REPORT INFORMATION
  Report Type: Spontaneous
  Country: CN (occurrence: CN)
  Receive Date: 20220107
  Receipt Date: 20220107
  Transmission Date: 20220423
  Serious: Yes (Hospitalization)
  Sender: FDA-Public Use
  Company Number: CN-ELI_LILLY_AND_COMPANY-CN202112013495

PATIENT
  Age: 76 Year
  Sex: Male
  Weight: 59 kg

DRUGS (12)
  1. INSULIN LISPRO [Suspect]
     Active Substance: INSULIN LISPRO
     Indication: Diabetes mellitus
     Dosage: 8 U, TID
     Route: 058
     Dates: start: 20211127, end: 20211130
  2. INSULIN LISPRO [Suspect]
     Active Substance: INSULIN LISPRO
     Dosage: 8 U, TID
     Route: 058
     Dates: start: 20211201, end: 20211207
  3. INSULIN GLARGINE [Suspect]
     Active Substance: INSULIN GLARGINE
     Indication: Diabetes mellitus
     Dosage: 8 U, DAILY
     Route: 058
     Dates: start: 20211127, end: 20211129
  4. INSULIN GLARGINE [Suspect]
     Active Substance: INSULIN GLARGINE
     Dosage: 10 U, DAILY
     Route: 058
     Dates: start: 20211129, end: 20211207
  5. INSULIN GLARGINE [Suspect]
     Active Substance: INSULIN GLARGINE
     Dosage: 8 U, DAILY
     Route: 058
     Dates: start: 20211203, end: 20211207
  6. HUMULIN 70/30 [Suspect]
     Active Substance: INSULIN HUMAN
     Indication: Diabetes mellitus
     Dosage: 18 U, EACH MORNING
     Route: 058
     Dates: start: 20210901, end: 20211126
  7. HUMULIN 70/30 [Suspect]
     Active Substance: INSULIN HUMAN
     Dosage: 12 U, DAILY (EVENING)
     Route: 058
     Dates: start: 20210901, end: 20211126
  8. HUMULIN N [Suspect]
     Active Substance: INSULIN HUMAN
     Indication: Diabetes mellitus
     Dosage: 8 U, TID
     Route: 058
     Dates: start: 20211203, end: 20211207
  9. EBASTINE [Concomitant]
     Active Substance: EBASTINE
     Indication: Hypersensitivity
  10. EPALRESTAT [Concomitant]
     Active Substance: EPALRESTAT
     Indication: Diabetes mellitus
     Dosage: 50 MG, DAILY
     Route: 030
     Dates: start: 20211204, end: 20211207
  11. GANSULIN R [Concomitant]
     Indication: Drug hypersensitivity
  12. METHYLCOBALAMIN [Concomitant]
     Active Substance: METHYLCOBALAMIN
     Indication: Diabetes mellitus
     Dosage: 50 MG, DAILY
     Route: 048
     Dates: start: 20211128, end: 20211207

REACTIONS (13)
  - Blood glucose increased [Recovering/Resolving]
  - Respiratory rate increased [Recovering/Resolving]
  - Blood pressure increased [Recovering/Resolving]
  - Red blood cell count decreased [Recovering/Resolving]
  - Haemoglobin decreased [Recovering/Resolving]
  - Haematocrit decreased [Recovering/Resolving]
  - Eosinophil count increased [Recovering/Resolving]
  - Subcutaneous haematoma [Recovering/Resolving]
  - Drug hypersensitivity [Recovering/Resolving]
  - Injection site induration [Recovered/Resolved]
  - Injection site induration [Recovered/Resolved]
  - Injection site induration [Recovered/Resolved]
  - Injection site pruritus [Unknown]

NARRATIVE: CASE EVENT DATE: 20211001
